FAERS Safety Report 23154939 (Version 1)
Quarter: 2023Q4

REPORT INFORMATION
  Report Type: Spontaneous
  Country: US (occurrence: US)
  Receive Date: 20231107
  Receipt Date: 20231107
  Transmission Date: 20240109
  Serious: Yes (Life-Threatening, Hospitalization)
  Sender: FDA-Public Use
  Company Number: US-TEVA-2023-US-2942275

PATIENT
  Age: 45 Year
  Sex: Male

DRUGS (5)
  1. METHYLPREDNISOLONE [Suspect]
     Active Substance: METHYLPREDNISOLONE
     Indication: Immune-mediated lung disease
     Dosage: 180 MILLIGRAM DAILY; 60MG THREE TIMES A DAY
     Route: 065
  2. METHYLPREDNISOLONE [Suspect]
     Active Substance: METHYLPREDNISOLONE
     Indication: Immune-mediated encephalitis
  3. METHYLPREDNISOLONE [Suspect]
     Active Substance: METHYLPREDNISOLONE
     Indication: Immune-mediated hepatitis
  4. METHYLPREDNISOLONE [Suspect]
     Active Substance: METHYLPREDNISOLONE
     Indication: Immune system disorder
  5. ATEZOLIZUMAB [Suspect]
     Active Substance: ATEZOLIZUMAB
     Indication: Small cell lung cancer
     Dosage: RECEIVED FOR EIGHT MONTHS
     Route: 065

REACTIONS (11)
  - Multiple organ dysfunction syndrome [Unknown]
  - Immune-mediated hepatitis [Unknown]
  - Immune-mediated lung disease [Unknown]
  - Immune-mediated encephalitis [Unknown]
  - Disseminated intravascular coagulation [Unknown]
  - Respiratory distress [Unknown]
  - Pulmonary alveolar haemorrhage [Unknown]
  - Cerebral microhaemorrhage [Unknown]
  - Immune system disorder [Unknown]
  - Encephalopathy [Unknown]
  - Drug ineffective [Unknown]
